FAERS Safety Report 7577447-8 (Version None)
Quarter: 2011Q2

REPORT INFORMATION
  Report Type: 
  Country: None (occurrence: None)
  Receive Date: 20110628
  Receipt Date: 20110623
  Transmission Date: 20111010
  Serious: Yes (Hospitalization)
  Sender: FDA-Public Use
  Company Number: IT-BAYER-2011-054310

PATIENT
  Age: 70 Year
  Sex: Male

DRUGS (1)
  1. ULTRAVIST 150 [Suspect]
     Indication: COMPUTERISED TOMOGRAM ABDOMEN
     Dosage: 120 ML, ONCE
     Route: 042
     Dates: start: 20110616, end: 20110616

REACTIONS (7)
  - CONVULSION [None]
  - BURNING SENSATION [None]
  - URTICARIA [None]
  - RASH GENERALISED [None]
  - CONFUSIONAL STATE [None]
  - EYELID OEDEMA [None]
  - PRURITUS [None]
